FAERS Safety Report 6171094-0 (Version None)
Quarter: 2009Q2

REPORT INFORMATION
  Report Type: 
  Country: None (occurrence: None)
  Receive Date: 20090429
  Receipt Date: 20090420
  Transmission Date: 20091009
  Serious: Yes (Other)
  Sender: FDA-Public Use
  Company Number: PHEH2009US03907

PATIENT
  Sex: Female

DRUGS (13)
  1. EXELON [Suspect]
     Dosage: 4.6 MG, QD
     Route: 062
  2. DEPAKOTE [Concomitant]
     Dosage: 500 MG, UNK
  3. NAMENDA [Concomitant]
     Dosage: UNK, UNK
  4. SYNTHROID [Concomitant]
     Dosage: UNK, UNK
  5. PHENERGAN ^AVENTIS PHARMA^ [Concomitant]
     Dosage: UNK, UNK
  6. TRAMADOL HCL [Concomitant]
     Dosage: UNK, UNK
  7. TESSALON [Concomitant]
     Dosage: UNK, UNK
  8. PREMARIN [Concomitant]
     Dosage: UNK, UNK
  9. PREDNISONE [Concomitant]
     Dosage: UNK, UNK
  10. PRILOSEC [Concomitant]
     Dosage: UNK, UNK
  11. VESICARE [Concomitant]
     Dosage: UNK, UNK
  12. LEXAPRO [Concomitant]
     Dosage: 5 MG, UNK
  13. TYLENOL [Concomitant]
     Dosage: UNK, UNK

REACTIONS (3)
  - BALANCE DISORDER [None]
  - DEPRESSION [None]
  - VOMITING [None]
